FAERS Safety Report 7197279-2 (Version None)
Quarter: 2010Q4

REPORT INFORMATION
  Report Type: 
  Country: None (occurrence: None)
  Receive Date: 20101226
  Receipt Date: 20101217
  Transmission Date: 20110411
  Serious: Yes (Hospitalization)
  Sender: FDA-Public Use
  Company Number: US-AMGEN-USASP2010010022

PATIENT

DRUGS (5)
  1. NEULASTA [Suspect]
     Indication: NEUTROPENIA
     Dates: start: 20100901
  2. CARBOPLATIN [Concomitant]
  3. TAXOL [Concomitant]
  4. VICODIN [Concomitant]
  5. PRISTIQ [Concomitant]

REACTIONS (6)
  - CLOSTRIDIAL INFECTION [None]
  - POSTOPERATIVE WOUND INFECTION [None]
  - PYREXIA [None]
  - STAPHYLOCOCCAL INFECTION [None]
  - URINARY TRACT INFECTION [None]
  - WHITE BLOOD CELL COUNT INCREASED [None]
